FAERS Safety Report 4479512-0 (Version None)
Quarter: 2004Q4

REPORT INFORMATION
  Report Type: 
  Country: None (occurrence: None)
  Receive Date: 20041020
  Receipt Date: 20041013
  Transmission Date: 20050328
  Serious: Yes (Hospitalization)
  Sender: FDA-Public Use
  Company Number: GB-BRISTOL-MYERS SQUIBB COMPANY-12730958

PATIENT
  Age: 71 Year
  Sex: Female
  Weight: 60 kg

DRUGS (5)
  1. CYCLOPHOSPHAMIDE [Suspect]
     Indication: BREAST CANCER
     Dates: start: 20040810, end: 20040810
  2. PACLITAXEL [Suspect]
     Indication: BREAST CANCER
     Dates: start: 20040831, end: 20040831
  3. EPIRUBICIN [Suspect]
     Indication: BREAST CANCER
     Dates: start: 20040810, end: 20040810
  4. GEMCITABINE [Suspect]
     Indication: BREAST CANCER
     Dates: start: 20040831, end: 20040831
  5. NEUPOGEN [Concomitant]
     Route: 058
     Dates: start: 20040905, end: 20040910

REACTIONS (3)
  - BACK PAIN [None]
  - CHEST PAIN [None]
  - INFLUENZA LIKE ILLNESS [None]
